FAERS Safety Report 8778183 (Version 2)
Quarter: 2012Q4

REPORT INFORMATION
  Report Type: 
  Country: GB (occurrence: GB)
  Receive Date: 20120912
  Receipt Date: 20121108
  Transmission Date: 20130627
  Serious: Yes (Hospitalization)
  Sender: FDA-Public Use
  Company Number: GB-ELI_LILLY_AND_COMPANY-GB201209000906

PATIENT
  Age: 37 Year
  Sex: Male
  Weight: 27.48 kg

DRUGS (4)
  1. STRATTERA [Suspect]
     Indication: ATTENTION DEFICIT/HYPERACTIVITY DISORDER
     Dosage: 35 mg, qd
     Dates: start: 20120601
  2. METHYLPHENIDATE - SLOW RELEASE [Concomitant]
  3. MELATONIN [Concomitant]
  4. MULTIVITAMINS [Concomitant]

REACTIONS (1)
  - Increased tendency to bruise [Recovered/Resolved]
